FAERS Safety Report 23590401 (Version 2)
Quarter: 2024Q1

REPORT INFORMATION
  Report Type: Other
  Country: US (occurrence: None)
  Receive Date: 20240304
  Receipt Date: 20240307
  Transmission Date: 20240409
  Serious: Yes (Hospitalization)
  Sender: FDA-Public Use
  Company Number: US-ROCHE-3518562

PATIENT

DRUGS (7)
  1. ATEZOLIZUMAB [Suspect]
     Active Substance: ATEZOLIZUMAB
     Indication: Neoplasm malignant
     Route: 065
  2. IPILIMUMAB [Suspect]
     Active Substance: IPILIMUMAB
     Indication: Neoplasm malignant
     Route: 065
  3. TREMELIMUMAB [Suspect]
     Active Substance: TREMELIMUMAB
     Indication: Neoplasm malignant
     Route: 065
  4. DURVALUMAB [Suspect]
     Active Substance: DURVALUMAB
     Indication: Neoplasm malignant
     Route: 065
  5. NIVOLUMAB [Suspect]
     Active Substance: NIVOLUMAB
     Indication: Neoplasm malignant
     Route: 065
  6. PEMBROLIZUMAB [Suspect]
     Active Substance: PEMBROLIZUMAB
     Indication: Neoplasm malignant
     Route: 065
  7. CEMIPLIMAB [Suspect]
     Active Substance: CEMIPLIMAB
     Indication: Neoplasm malignant
     Route: 065

REACTIONS (38)
  - Hepatitis [Unknown]
  - Colitis [Unknown]
  - Pneumonitis [Unknown]
  - Myocarditis [Unknown]
  - Myalgia [Unknown]
  - Diabetes mellitus [Unknown]
  - Acute respiratory distress syndrome [Unknown]
  - Duodenitis [Unknown]
  - Enteritis [Unknown]
  - Pancreatitis [Unknown]
  - Mucosal inflammation [Unknown]
  - Hypophysitis [Unknown]
  - Thyroid disorder [Unknown]
  - Primary adrenal insufficiency [Unknown]
  - Hyperparathyroidism [Unknown]
  - Pleurisy [Unknown]
  - Pleural effusion [Unknown]
  - Pyrexia [Unknown]
  - Myasthenia gravis [Unknown]
  - Encephalitis [Unknown]
  - Diplopia [Unknown]
  - Ophthalmoplegia [Unknown]
  - Guillain-Barre syndrome [Unknown]
  - Neuropathy peripheral [Unknown]
  - Myelitis [Unknown]
  - Encephalitis [Unknown]
  - Headache [Unknown]
  - Myositis [Unknown]
  - Arthritis [Unknown]
  - Stevens-Johnson syndrome [Unknown]
  - Toxic epidermal necrolysis [Unknown]
  - Still^s disease [Unknown]
  - Cutaneous lupus erythematosus [Unknown]
  - Lichenoid keratosis [Unknown]
  - Pericarditis [Unknown]
  - Pericardial effusion [Unknown]
  - Arrhythmia [Unknown]
  - Cardiomyopathy [Unknown]
